FAERS Safety Report 14412773 (Version 1)
Quarter: 2018Q1

REPORT INFORMATION
  Report Type: Spontaneous
  Country: US (occurrence: US)
  Receive Date: 20180119
  Receipt Date: 20180119
  Transmission Date: 20180509
  Serious: Yes (Hospitalization)
  Sender: FDA-Public Use
  Company Number: None

PATIENT
  Age: 72 Year
  Sex: Female
  Weight: 90.4 kg

DRUGS (12)
  1. PEPCID [Concomitant]
     Active Substance: FAMOTIDINE
  2. PRAVACHOL [Concomitant]
     Active Substance: PRAVASTATIN SODIUM
  3. ALLOPURINOL. [Concomitant]
     Active Substance: ALLOPURINOL
  4. BUPROPRION [Concomitant]
     Active Substance: BUPROPION
  5. COLACE [Concomitant]
     Active Substance: DOCUSATE SODIUM
  6. MAGOX [Concomitant]
  7. PROTONIX [Concomitant]
     Active Substance: PANTOPRAZOLE SODIUM
  8. KCLK [Concomitant]
  9. ZOFRAN [Concomitant]
     Active Substance: ONDANSETRON HYDROCHLORIDE
  10. OXYCONTIN [Suspect]
     Active Substance: OXYCODONE HYDROCHLORIDE
     Indication: SHOULDER ARTHROPLASTY
     Route: 048
  11. OXYCODONE [Suspect]
     Active Substance: OXYCODONE
     Indication: SHOULDER ARTHROPLASTY
     Dosage: 5MG ONCE Q3H PRN PO
     Route: 048
  12. LACTATED RINGERS SOLUTION [Concomitant]
     Active Substance: CALCIUM CHLORIDE\POTASSIUM CHLORIDE\SODIUM CHLORIDE\SODIUM LACTATE

REACTIONS (4)
  - Hypoxia [None]
  - Oxygen saturation decreased [None]
  - Aspiration [None]
  - Unresponsive to stimuli [None]

NARRATIVE: CASE EVENT DATE: 20170922
